FAERS Safety Report 26091191 (Version 1)
Quarter: 2025Q4

REPORT INFORMATION
  Report Type: Spontaneous
  Country: US (occurrence: US)
  Receive Date: 20251126
  Receipt Date: 20251126
  Transmission Date: 20260117
  Serious: No
  Sender: TELIX PHARMACEUTICALS
  Company Number: US-TLX-2025000003

PATIENT
  Sex: Male

DRUGS (1)
  1. ILLUCCIX [Suspect]
     Active Substance: GALLIUM GA-68 GOZETOTIDE
     Indication: Diagnostic procedure
     Route: 040

REACTIONS (2)
  - Positron emission tomogram abnormal [Unknown]
  - Positron emission tomogram abnormal [Unknown]
